FAERS Safety Report 13488651 (Version 3)
Quarter: 2018Q3

REPORT INFORMATION
  Report Type: Spontaneous
  Country: US (occurrence: US)
  Receive Date: 20170426
  Receipt Date: 20180702
  Transmission Date: 20181010
  Serious: No
  Sender: FDA-Public Use
  Company Number: US-ALKERMES INC.-ALK-2017-000179

PATIENT
  Age: 25 Year
  Sex: Male
  Weight: 70.3 kg

DRUGS (1)
  1. VIVITROL [Suspect]
     Active Substance: NALTREXONE
     Indication: DRUG DEPENDENCE
     Dosage: 380 MG, QMO
     Route: 030
     Dates: start: 20161221

REACTIONS (3)
  - Needle issue [Not Recovered/Not Resolved]
  - Product gel formation [Not Recovered/Not Resolved]
  - Underdose [Not Recovered/Not Resolved]

NARRATIVE: CASE EVENT DATE: 20170117
